FAERS Safety Report 7401381-7 (Version None)
Quarter: 2011Q2

REPORT INFORMATION
  Report Type: 
  Country: None (occurrence: None)
  Receive Date: 20110407
  Receipt Date: 20110405
  Transmission Date: 20111010
  Serious: Yes (Hospitalization)
  Sender: FDA-Public Use
  Company Number: PL-MERCK-1104POL00002

PATIENT
  Age: 65 Year
  Sex: Male

DRUGS (1)
  1. ZETIA [Suspect]
     Route: 048
     Dates: start: 20110326, end: 20110331

REACTIONS (5)
  - ANAESTHESIA [None]
  - TONGUE OEDEMA [None]
  - PHARYNGEAL OEDEMA [None]
  - FACE OEDEMA [None]
  - BALANCE DISORDER [None]
